FAERS Safety Report 19031979 (Version 2)
Quarter: 2021Q1

REPORT INFORMATION
  Report Type: Spontaneous
  Country: US (occurrence: US)
  Receive Date: 20210319
  Receipt Date: 20210329
  Transmission Date: 20210420
  Serious: No
  Sender: FDA-Public Use
  Company Number: US-SA-2021SA093885

PATIENT
  Age: 27 Year
  Sex: Male

DRUGS (3)
  1. DUPIXENT [Suspect]
     Active Substance: DUPILUMAB
     Indication: DERMATITIS ATOPIC
     Dosage: DRUG STRUCTURE DOSAGE : 300 DRUG INTERVAL DOSAGE : Q2WEEKS
     Dates: start: 20200302
  2. DUPIXENT [Suspect]
     Active Substance: DUPILUMAB
     Dates: start: 20200302
  3. DUPIXENT [Suspect]
     Active Substance: DUPILUMAB

REACTIONS (1)
  - Dermatitis atopic [Unknown]
